FAERS Safety Report 9316294 (Version 7)
Quarter: 2013Q4

REPORT INFORMATION
  Report Type: Spontaneous
  Country: FR (occurrence: None)
  Receive Date: 20130522
  Receipt Date: 20131101
  Transmission Date: 20140711
  Serious: Yes (Hospitalization)
  Sender: FDA-Public Use
  Company Number: ACO_36272_2013

PATIENT
  Age: 29 Year
  Sex: Female
  Weight: 94 kg

DRUGS (2)
  1. FAMPYRA [Suspect]
     Indication: GAIT DISTURBANCE
     Route: 048
     Dates: start: 20130418, end: 20130501
  2. DAILY GE (ETHINYLESTRADIOL, LEVONORGESTREL) [Concomitant]

REACTIONS (14)
  - Hepatitis fulminant [None]
  - Drug-induced liver injury [None]
  - Headache [None]
  - Prothrombin time ratio decreased [None]
  - Cell death [None]
  - Cholestasis [None]
  - Epstein-Barr virus test positive [None]
  - Herpes simplex serology positive [None]
  - Varicella virus test positive [None]
  - Localised intraabdominal fluid collection [None]
  - Liver disorder [None]
  - Cholelithiasis [None]
  - Hepatocellular injury [None]
  - Hepatitis acute [None]
